FAERS Safety Report 4670202-8 (Version None)
Quarter: 2005Q2

REPORT INFORMATION
  Report Type: 
  Country: None (occurrence: None)
  Receive Date: 20050520
  Receipt Date: 20050512
  Transmission Date: 20051028
  Serious: Yes (Other)
  Sender: FDA-Public Use
  Company Number: 2005074380

PATIENT
  Age: 69 Year
  Sex: Male
  Weight: 113.3993 kg

DRUGS (5)
  1. NORVASC [Suspect]
     Indication: ILL-DEFINED DISORDER
     Dosage: 5 MG (5 MG DAILY INTERVAL: EVERY DAY) ORAL
     Route: 048
     Dates: start: 20020401
  2. ATENOLOL [Concomitant]
  3. ZESTRIL [Concomitant]
  4. DURAGESIC (FENTANYL) [Concomitant]
  5. FOLIC ACID [Concomitant]

REACTIONS (3)
  - CONSTIPATION [None]
  - DRUG INTOLERANCE [None]
  - IRON DEFICIENCY ANAEMIA [None]
